FAERS Safety Report 5712082-5 (Version None)
Quarter: 2008Q2

REPORT INFORMATION
  Report Type: 
  Country: None (occurrence: None)
  Receive Date: 20080417
  Receipt Date: 20080407
  Transmission Date: 20081010
  Serious: Yes (Hospitalization)
  Sender: FDA-Public Use
  Company Number: 2008-02298

PATIENT
  Age: 60 Year
  Sex: Female

DRUGS (1)
  1. DICLOFENAC POTASSIUM [Suspect]
     Indication: BACK PAIN
     Dosage: INTRAMUSCULAR
     Route: 030

REACTIONS (1)
  - EMBOLIA CUTIS MEDICAMENTOSA [None]
